FAERS Safety Report 16823387 (Version 2)
Quarter: 2019Q3

REPORT INFORMATION
  Report Type: Spontaneous
  Country: DE (occurrence: DE)
  Receive Date: 20190918
  Receipt Date: 20190925
  Transmission Date: 20191005
  Serious: Yes (Hospitalization, Other)
  Sender: FDA-Public Use
  Company Number: DE-PFIZER INC-2019401052

PATIENT
  Age: 48 Year
  Sex: Female
  Weight: 90 kg

DRUGS (10)
  1. ASA [Suspect]
     Active Substance: ASPIRIN
     Dosage: 1 DF, 1X/DAY (QD)
     Route: 065
     Dates: start: 20080707
  2. LEVOCETIRIZIN HEXAL [Concomitant]
     Dosage: 2 DF, 1X/DAY (QD)
     Route: 065
     Dates: start: 20060302
  3. LYRICA [Concomitant]
     Active Substance: PREGABALIN
     Dosage: 2 DF, 1X/DAY (QD)
     Route: 065
     Dates: start: 20090110
  4. VENLAFAXIN [Concomitant]
     Active Substance: VENLAFAXINE HYDROCHLORIDE
     Dosage: 2 DF, 1X/DAY (QD)
     Route: 065
     Dates: start: 20090110
  5. LAMOTRIGIN DURA [Concomitant]
     Active Substance: LAMOTRIGINE
     Dosage: 4 DF, 1X/DAY (QD)
     Route: 065
     Dates: start: 20091025
  6. RAMIPRIL. [Suspect]
     Active Substance: RAMIPRIL
     Dosage: 1 DF, 1X/DAY (QD)
     Route: 065
     Dates: start: 20080707
  7. OMEPRAZOL AL [Concomitant]
     Active Substance: OMEPRAZOLE
     Dosage: 1 DF, 1X/DAY (QD)
     Route: 065
     Dates: start: 20080707
  8. METFORMIN HEUMANN [Concomitant]
     Active Substance: METFORMIN HYDROCHLORIDE
     Dosage: 2 DF, 1X/DAY (QD)
     Route: 065
     Dates: start: 20090901
  9. SIMVASTATIN ATID [Concomitant]
     Dosage: 1 DF, UNK
     Route: 065
     Dates: start: 20080707
  10. TORASEMID AL [Concomitant]
     Active Substance: TORSEMIDE
     Dosage: 1 DF, UNK
     Route: 065
     Dates: start: 20080707

REACTIONS (6)
  - Fatigue [Unknown]
  - Renal impairment [Unknown]
  - Dry mouth [Unknown]
  - Pyrexia [Unknown]
  - Pain [Unknown]
  - Hepatic steatosis [Unknown]

NARRATIVE: CASE EVENT DATE: 20080707
